FAERS Safety Report 9162052 (Version 1)
Quarter: 2013Q1

REPORT INFORMATION
  Report Type: Report from Study
  Country: US (occurrence: US)
  Receive Date: 20130314
  Receipt Date: 20130314
  Transmission Date: 20140127
  Serious: Yes (Hospitalization)
  Sender: FDA-Public Use
  Company Number: US-JNJFOC-20130305082

PATIENT
  Age: 16 Year
  Sex: Male
  Weight: 53.7 kg

DRUGS (3)
  1. REMICADE [Suspect]
     Indication: INFLAMMATORY BOWEL DISEASE
     Route: 042
  2. METHOTREXATE [Concomitant]
     Route: 065
  3. LOVENOX [Concomitant]
     Route: 065

REACTIONS (1)
  - Chest pain [Recovered/Resolved]
